FAERS Safety Report 14019655 (Version 1)
Quarter: 2017Q3

REPORT INFORMATION
  Report Type: Spontaneous
  Country: US (occurrence: US)
  Receive Date: 20170928
  Receipt Date: 20170928
  Transmission Date: 20171128
  Serious: Yes (Hospitalization)
  Sender: FDA-Public Use
  Company Number: US-PFIZER INC-2017417021

PATIENT
  Age: 55 Year
  Sex: Female

DRUGS (9)
  1. NEURONTIN [Concomitant]
     Active Substance: GABAPENTIN
     Dosage: 100 MG, 3X/DAY
  2. CELEBREX [Concomitant]
     Active Substance: CELECOXIB
     Dosage: UNK
     Dates: start: 20020101, end: 20020416
  3. TYLENOL [Concomitant]
     Active Substance: ACETAMINOPHEN
     Dosage: UNK
     Dates: start: 19730101
  4. DILANTIN [Suspect]
     Active Substance: PHENYTOIN
     Dosage: UNK
     Dates: start: 20030301, end: 20040204
  5. DILANTIN [Suspect]
     Active Substance: PHENYTOIN
     Dosage: UNK
     Dates: start: 20040205, end: 20040205
  6. VIOXX [Suspect]
     Active Substance: ROFECOXIB
     Indication: SPINAL CORD DISORDER
     Dosage: UNK MG, 1X/DAY
     Route: 048
     Dates: start: 20010101, end: 20030303
  7. PREVACID [Concomitant]
     Active Substance: LANSOPRAZOLE
     Dosage: 30 MG, 1X/DAY
  8. PREMARIN [Concomitant]
     Active Substance: ESTROGENS, CONJUGATED
     Indication: HOT FLUSH
     Dosage: 1 MG, 1X/DAY
     Dates: start: 19760101
  9. LORTAB [Concomitant]
     Active Substance: ACETAMINOPHEN\HYDROCODONE BITARTRATE
     Dosage: UNK

REACTIONS (39)
  - Chronic obstructive pulmonary disease [Unknown]
  - Gastrointestinal disorder [Unknown]
  - Ischaemic stroke [Not Recovered/Not Resolved]
  - Pain [Unknown]
  - Seizure [Unknown]
  - Cardiac disorder [Unknown]
  - Limb injury [Unknown]
  - Mental status changes [Unknown]
  - Oesophageal disorder [Unknown]
  - Pruritus [Unknown]
  - Spinal column stenosis [Unknown]
  - Depression [Unknown]
  - Fatigue [Unknown]
  - Suicide attempt [Unknown]
  - Chest pain [Unknown]
  - Hypovolaemia [Unknown]
  - Nerve injury [Unknown]
  - Feeling abnormal [Unknown]
  - Hepatic enzyme increased [Unknown]
  - Hiatus hernia [Unknown]
  - Nausea [Unknown]
  - Transient ischaemic attack [Unknown]
  - Urinary tract infection [Unknown]
  - Vomiting [Unknown]
  - Arrhythmia [Unknown]
  - Fall [Unknown]
  - Gastric ulcer [Unknown]
  - Renal disorder [Unknown]
  - Ventricular dysfunction [Unknown]
  - Cervicobrachial syndrome [Unknown]
  - Hyperkalaemia [Unknown]
  - Rotator cuff syndrome [Unknown]
  - Tremor [Unknown]
  - Constipation [Unknown]
  - Headache [Unknown]
  - Hyperlipidaemia [Unknown]
  - Hypoperfusion [Unknown]
  - Sleep apnoea syndrome [Unknown]
  - Intentional overdose [Unknown]

NARRATIVE: CASE EVENT DATE: 20010311
